FAERS Safety Report 17054788 (Version 1)
Quarter: 2019Q4

REPORT INFORMATION
  Report Type: Spontaneous
  Country: ES (occurrence: ES)
  Receive Date: 20191120
  Receipt Date: 20191120
  Transmission Date: 20200122
  Serious: Yes (Other)
  Sender: FDA-Public Use
  Company Number: ES-MYLANLABS-2019M1110733

PATIENT
  Age: 91 Year
  Sex: Female

DRUGS (15)
  1. FERRO SANOL [Concomitant]
     Active Substance: FERROUS GLYCINE SULFATE
     Dosage: 50 CAPSULES
     Route: 048
  2. AMERIDE                            /00206601/ [Interacting]
     Active Substance: AMILORIDE HYDROCHLORIDE\HYDROCHLOROTHIAZIDE
     Indication: HYPERTENSION
     Dosage: 1/2-0-0, 5 MG / 50 MG TABLETS, 60 TABLETS
     Route: 048
     Dates: start: 20180412, end: 20180720
  3. PARACETAMOL [Concomitant]
     Active Substance: ACETAMINOPHEN
     Dosage: 12A
     Route: 048
  4. DILUTOL 10 MG COMPRIMIDOS (TORASEMIDE) [Interacting]
     Active Substance: TORSEMIDE
     Indication: CARDIAC FAILURE
  5. AMERIDE                            /00206601/ [Interacting]
     Active Substance: AMILORIDE HYDROCHLORIDE\HYDROCHLOROTHIAZIDE
     Indication: CARDIAC FAILURE
  6. DEMILOS [Concomitant]
     Active Substance: CALCIUM CARBONATE\CHOLECALCIFEROL
     Dosage: 600 MG / 1000 IU TABLETS COMPRESSED SPARKLESS, 30 TABLETS
     Route: 002
  7. STILNOX [Concomitant]
     Active Substance: ZOLPIDEM TARTRATE
     Dosage: 30 TABLETS
     Route: 048
  8. SOMAZINA                           /00434801/ [Concomitant]
     Active Substance: CITICOLINE
     Dosage: 30 SACHETS OF 10 ML
     Route: 048
  9. DILUTOL 10 MG COMPRIMIDOS (TORASEMIDE) [Suspect]
     Active Substance: TORSEMIDE
     Indication: HYPERTENSION
     Dosage: 1-0-0. 1 CADA 24 HORAS
     Route: 048
     Dates: start: 20180719, end: 20180720
  10. CO-RENITEC [Interacting]
     Active Substance: ENALAPRIL\HYDROCHLOROTHIAZIDE
     Indication: HYPERTENSION
  11. DUPHALAC [Concomitant]
     Active Substance: LACTULOSE
     Dosage: UNK
     Route: 048
  12. ACETYLSALICYLIC ACID [Interacting]
     Active Substance: ASPIRIN
     Indication: PROPHYLAXIS
     Dosage: 0-1-0
     Route: 048
     Dates: start: 2015
  13. EUTIROX [Concomitant]
     Active Substance: LEVOTHYROXINE SODIUM
     Dosage: 100 TABLETS
     Route: 048
  14. ESOMEPRAZOL                        /01479301/ [Concomitant]
     Active Substance: ESOMEPRAZOLE
     Dosage: 28 CAPSULES
     Route: 048
  15. CO-RENITEC [Interacting]
     Active Substance: ENALAPRIL\HYDROCHLOROTHIAZIDE
     Indication: CARDIAC FAILURE
     Dosage: 1-0-0, 20 MG / 12.5 MG, 28 TABLETS
     Route: 048
     Dates: start: 2012, end: 20180720

REACTIONS (2)
  - Drug interaction [Unknown]
  - Acute kidney injury [Recovered/Resolved]

NARRATIVE: CASE EVENT DATE: 201807
